FAERS Safety Report 11682651 (Version 1)
Quarter: 2015Q4

REPORT INFORMATION
  Report Type: Spontaneous
  Country: US (occurrence: US)
  Receive Date: 20151029
  Receipt Date: 20151029
  Transmission Date: 20160304
  Serious: No
  Sender: FDA-Public Use
  Company Number: US-ASTRAZENECA-2015SF00903

PATIENT
  Age: 75 Year
  Sex: Male
  Weight: 112.9 kg

DRUGS (2)
  1. BYDUREON [Suspect]
     Active Substance: EXENATIDE
     Indication: TYPE 2 DIABETES MELLITUS
     Route: 058
  2. LANTUS [Concomitant]
     Active Substance: INSULIN GLARGINE

REACTIONS (5)
  - Product quality issue [Unknown]
  - Injection site pain [Unknown]
  - Nasopharyngitis [Unknown]
  - Lumbar spinal stenosis [Unknown]
  - Injection site haemorrhage [Unknown]
